FAERS Safety Report 14491297 (Version 1)
Quarter: 2018Q1

REPORT INFORMATION
  Report Type: Spontaneous
  Country: NL (occurrence: NL)
  Receive Date: 20180206
  Receipt Date: 20180206
  Transmission Date: 20180509
  Serious: Yes (Hospitalization)
  Sender: FDA-Public Use
  Company Number: PHHY2017NL200153

PATIENT
  Age: 78 Year
  Sex: Male

DRUGS (1)
  1. AMOXICILLIN + CLAVULANATE POTASSIUM [Suspect]
     Active Substance: AMOXICILLIN\CLAVULANATE POTASSIUM
     Indication: PYELONEPHRITIS
     Dosage: UNK, UNKNOWN FREQ.
     Route: 065

REACTIONS (4)
  - Splenic abscess [Unknown]
  - Adenocarcinoma [Recovered/Resolved]
  - Escherichia infection [Unknown]
  - Drug ineffective [Unknown]
